FAERS Safety Report 4478390-3 (Version None)
Quarter: 2004Q4

REPORT INFORMATION
  Report Type: 
  Country: None (occurrence: None)
  Receive Date: 20041013
  Receipt Date: 20040930
  Transmission Date: 20050328
  Serious: Yes (Other)
  Sender: FDA-Public Use
  Company Number: B0346741A

PATIENT
  Sex: Female

DRUGS (1)
  1. PYRIMETHAMINE TAB [Suspect]
     Indication: CONGENITAL TOXOPLASMOSIS

REACTIONS (2)
  - DRUG EXPOSURE DURING PREGNANCY [None]
  - PANCYTOPENIA [None]
